FAERS Safety Report 9067680 (Version 2)
Quarter: 2013Q1

REPORT INFORMATION
  Report Type: Report from Study
  Country: DE (occurrence: DE)
  Receive Date: 20130206
  Receipt Date: 20130212
  Transmission Date: 20140127
  Serious: Yes (Hospitalization)
  Sender: FDA-Public Use
  Company Number: DE-JNJFOC-20130200025

PATIENT
  Age: 46 Year
  Sex: Female
  Weight: 94 kg

DRUGS (12)
  1. SIMPONI [Suspect]
     Indication: PRODUCT USED FOR UNKNOWN INDICATION
     Route: 058
     Dates: start: 20110520
  2. SIMPONI [Suspect]
     Indication: PRODUCT USED FOR UNKNOWN INDICATION
     Route: 058
     Dates: start: 20120803, end: 20120824
  3. MOXONIDIN [Concomitant]
     Indication: HYPERTENSION
     Dates: start: 200901
  4. METOPROLOL [Concomitant]
     Indication: HYPERTENSION
     Dates: start: 2003
  5. BIPRETERAX [Concomitant]
     Indication: HYPERTENSION
     Dates: start: 200706
  6. TORASEMID [Concomitant]
     Indication: HYPERTENSION
     Dates: start: 200901
  7. PANTOPRAZOLE [Concomitant]
     Indication: GASTROOESOPHAGEAL REFLUX DISEASE
     Dates: start: 200706
  8. VENLAFAXINE [Concomitant]
     Indication: DEPRESSION
     Dates: start: 201001
  9. VENLAFAXINE [Concomitant]
     Indication: DEPRESSION
     Dates: start: 201203
  10. CELEBREX [Concomitant]
     Indication: PAIN
     Dates: start: 201001
  11. HYDROMORPHONE [Concomitant]
     Indication: PAIN
     Dates: start: 201104
  12. SULFASALAZIN [Concomitant]
     Indication: ANKYLOSING SPONDYLITIS
     Dates: start: 200901

REACTIONS (1)
  - Bronchitis [Recovering/Resolving]
